FAERS Safety Report 9290378 (Version 1)
Quarter: 2013Q2

REPORT INFORMATION
  Report Type: Spontaneous
  Country: US (occurrence: None)
  Receive Date: 20130514
  Receipt Date: 20130514
  Transmission Date: 20140414
  Serious: Yes (Hospitalization, Other)
  Sender: FDA-Public Use
  Company Number: None

PATIENT
  Age: 10 Year
  Sex: Female
  Weight: 9.7 kg

DRUGS (4)
  1. LONAFARNIB [Suspect]
     Indication: PROGERIA
     Route: 048
     Dates: start: 20070823
  2. PRAVASTATIN [Suspect]
     Indication: PROGERIA
     Route: 048
     Dates: start: 20090915, end: 20120901
  3. LOPERAMIDE [Concomitant]
  4. ERGOCALCIFEROL [Concomitant]

REACTIONS (4)
  - Subdural haematoma [None]
  - Fall [None]
  - Vomiting [None]
  - Headache [None]
